FAERS Safety Report 4347394-3 (Version None)
Quarter: 2004Q2

REPORT INFORMATION
  Report Type: 
  Country: None (occurrence: None)
  Receive Date: 20040426
  Receipt Date: 20040426
  Transmission Date: 20050107
  Serious: No
  Sender: FDA-Public Use
  Company Number: None

PATIENT
  Age: 41 Year
  Sex: Female
  Weight: 52.1637 kg

DRUGS (2)
  1. SKELAXIN [Suspect]
     Indication: BACK DISORDER
     Dosage: 1 TABLET DAY ORAL
     Route: 048
     Dates: start: 20031217, end: 20040107
  2. SKELAXIN [Suspect]
     Indication: BACK DISORDER
     Dosage: 3 TABLET DAY ORAL
     Route: 048
     Dates: start: 20040107, end: 20040109

REACTIONS (3)
  - ANXIETY [None]
  - INSOMNIA [None]
  - PSYCHOTIC DISORDER [None]
